FAERS Safety Report 9049414 (Version 3)
Quarter: 2013Q1

REPORT INFORMATION
  Report Type: Report from Study
  Country: US (occurrence: US)
  Receive Date: 20130205
  Receipt Date: 20130321
  Transmission Date: 20140127
  Serious: Yes (Hospitalization)
  Sender: FDA-Public Use
  Company Number: US-JNJFOC-20130117538

PATIENT
  Age: 20 None
  Sex: Male
  Weight: 73.6 kg

DRUGS (11)
  1. REMICADE [Suspect]
     Indication: CROHN^S DISEASE
     Route: 042
  2. REMICADE [Suspect]
     Indication: CROHN^S DISEASE
     Route: 042
     Dates: start: 20121030
  3. REMICADE [Suspect]
     Indication: CROHN^S DISEASE
     Route: 042
     Dates: start: 20130131
  4. REMICADE [Suspect]
     Indication: CROHN^S DISEASE
     Route: 042
     Dates: start: 20100218
  5. REMICADE [Suspect]
     Indication: CROHN^S DISEASE
     Route: 042
     Dates: start: 20120515, end: 20120625
  6. 5-ASA [Concomitant]
     Route: 054
  7. VITAMIN D [Concomitant]
  8. FERROUS SULFATE [Concomitant]
  9. DOXYCYCLINE [Concomitant]
  10. XOPENEX [Concomitant]
  11. TYLENOL [Concomitant]

REACTIONS (1)
  - Crohn^s disease [Recovered/Resolved]
